FAERS Safety Report 9462036 (Version 1)
Quarter: 2013Q3

REPORT INFORMATION
  Report Type: Spontaneous
  Country: US (occurrence: None)
  Receive Date: 20130815
  Receipt Date: 20130815
  Transmission Date: 20140515
  Serious: Yes (Hospitalization)
  Sender: FDA-Public Use
  Company Number: None

PATIENT
  Age: 93 Year
  Sex: Female

DRUGS (1)
  1. DILANTIN [Suspect]
     Dosage: CHRONIC
     Route: 048

REACTIONS (3)
  - Somnolence [None]
  - Toxicity to various agents [None]
  - Ataxia [None]
